FAERS Safety Report 17930108 (Version 1)
Quarter: 2020Q2

REPORT INFORMATION
  Report Type: Spontaneous
  Country: US (occurrence: US)
  Receive Date: 20200623
  Receipt Date: 20200623
  Transmission Date: 20200714
  Serious: Yes (Hospitalization)
  Sender: FDA-Public Use
  Company Number: None

PATIENT
  Age: 76 Year
  Sex: Female
  Weight: 58.5 kg

DRUGS (4)
  1. 90 LEVOTHYROXINE SODIUM 50MCG TAB [Suspect]
     Active Substance: LEVOTHYROXINE SODIUM
     Indication: AUTOIMMUNE THYROIDITIS
     Dosage: ?          QUANTITY:90 TABLET(S);?
     Route: 048
  2. POSTURE D /00278001/ (CALCIUM PHOSPHATE, COLECALCIFEROL) [Concomitant]
     Active Substance: CALCIUM PHOSPHATE\CHOLECALCIFEROL
  3. ASPIRIN. [Concomitant]
     Active Substance: ASPIRIN
  4. CETIRIZINE [Concomitant]
     Active Substance: CETIRIZINE HYDROCHLORIDE

REACTIONS (4)
  - Hypertension [None]
  - Facial paralysis [None]
  - Lacunar infarction [None]
  - Heart rate increased [None]

NARRATIVE: CASE EVENT DATE: 20200203
